FAERS Safety Report 12380929 (Version 1)
Quarter: 2016Q2

REPORT INFORMATION
  Report Type: Spontaneous
  Country: US (occurrence: None)
  Receive Date: 20160517
  Receipt Date: 20160517
  Transmission Date: 20160815
  Serious: Yes (Other)
  Sender: FDA-Public Use
  Company Number: None

PATIENT
  Age: 67 Year
  Sex: Male
  Weight: 99.79 kg

DRUGS (8)
  1. OCUVITE-GENERIC [Concomitant]
  2. ATIVAN [Concomitant]
     Active Substance: LORAZEPAM
  3. CICLOPIROX OLAMINE TOP SUS .77%, .77% PERRIGO [Suspect]
     Active Substance: CICLOPIROX OLAMINE
     Indication: FUNGAL INFECTION
     Dosage: 30 ML AT BEDTIME, APPLIED TO A SURFACE, USUALLY THE SKIN
  4. THERAPEUTIC VITAMINS [Concomitant]
  5. ASTELIN [Concomitant]
     Active Substance: AZELASTINE HYDROCHLORIDE
  6. ATORVASTATIN [Concomitant]
     Active Substance: ATORVASTATIN
  7. FLUTICASONE [Concomitant]
     Active Substance: FLUTICASONE\FLUTICASONE PROPIONATE
  8. METAPROTERENOL [Concomitant]
     Active Substance: METAPROTERENOL

REACTIONS (3)
  - Condition aggravated [None]
  - Drug ineffective [None]
  - Product measured potency issue [None]

NARRATIVE: CASE EVENT DATE: 20160315
